FAERS Safety Report 6128192-7 (Version None)
Quarter: 2009Q1

REPORT INFORMATION
  Report Type: 
  Country: None (occurrence: None)
  Receive Date: 20090323
  Receipt Date: 20090310
  Transmission Date: 20090719
  Serious: Yes (Other)
  Sender: FDA-Public Use
  Company Number: FR-ROCHE-606518

PATIENT
  Sex: Female

DRUGS (3)
  1. VESANOID [Suspect]
     Dosage: FREQUENCY : 15 DAYS/ 3 MONTHS
     Route: 048
     Dates: start: 20060502, end: 20081130
  2. METHOTREXATE [Suspect]
     Dosage: FREQUENCY : 12 TABLETS PER WEEK
     Route: 048
     Dates: start: 20061101, end: 20081130
  3. PURINETHOL [Concomitant]
     Route: 048
     Dates: start: 20061101, end: 20081130

REACTIONS (1)
  - ABORTION SPONTANEOUS [None]
